FAERS Safety Report 11078340 (Version 3)
Quarter: 2015Q3

REPORT INFORMATION
  Report Type: Spontaneous
  Country: JP (occurrence: None)
  Receive Date: 20150428
  Receipt Date: 20150702
  Transmission Date: 20151125
  Serious: Yes (Hospitalization)
  Sender: FDA-Public Use
  Company Number: 2015-000765

PATIENT
  Age: 76 Year
  Sex: Male

DRUGS (1)
  1. BENET(RISEDRONATE SODIUM)TABLET 17.5 MG [Suspect]
     Active Substance: RISEDRONATE SODIUM
     Indication: OSTEITIS DEFORMANS
     Route: 048

REACTIONS (8)
  - Incorrect dose administered [None]
  - Sensory disturbance [None]
  - Atypical femur fracture [None]
  - Arthralgia [None]
  - Gait disturbance [None]
  - Blood alkaline phosphatase increased [None]
  - Femur fracture [None]
  - Deformity [None]
